FAERS Safety Report 11496099 (Version 1)
Quarter: 2015Q3

REPORT INFORMATION
  Report Type: Spontaneous
  Country: US (occurrence: None)
  Receive Date: 20150911
  Receipt Date: 20150911
  Transmission Date: 20151125
  Serious: No
  Sender: FDA-Public Use
  Company Number: US-MDT-ADR-2015-01765

PATIENT
  Age: 58 Year
  Sex: Female

DRUGS (1)
  1. BACLOFEN INTRATHECAL; UNK [Suspect]
     Active Substance: BACLOFEN
     Indication: MUSCLE SPASTICITY
     Dosage: UNK

REACTIONS (3)
  - Chromaturia [None]
  - Frequent bowel movements [None]
  - Blood urine present [None]
